FAERS Safety Report 25263039 (Version 1)
Quarter: 2025Q2

REPORT INFORMATION
  Report Type: Spontaneous
  Country: CN (occurrence: CN)
  Receive Date: 20250502
  Receipt Date: 20250502
  Transmission Date: 20250717
  Serious: Yes (Other)
  Sender: NOVARTIS
  Company Number: CN-002147023-NVSC2025CN070676

PATIENT
  Age: 17 Year
  Sex: Female

DRUGS (9)
  1. CYCLOSPORINE [Suspect]
     Active Substance: CYCLOSPORINE
     Indication: Pyoderma gangrenosum
     Dosage: 200 MG, QD
     Route: 048
  2. CYCLOSPORINE [Suspect]
     Active Substance: CYCLOSPORINE
     Dosage: 100 MG, QD
     Route: 065
  3. METHYLPREDNISOLONE [Suspect]
     Active Substance: METHYLPREDNISOLONE
     Indication: Pyoderma gangrenosum
     Dosage: 40 MG, QD
     Route: 065
  4. METHYLPREDNISOLONE [Suspect]
     Active Substance: METHYLPREDNISOLONE
     Dosage: 3 MG, QD (FOR 1 DAY)
     Route: 065
  5. Bozhi glycopeptide [Concomitant]
     Indication: Immune disorder prophylaxis
     Route: 041
  6. DEXAMETHASONE [Concomitant]
     Active Substance: DEXAMETHASONE
     Indication: Antiinflammatory therapy
     Route: 065
  7. FUSIDIC ACID [Concomitant]
     Active Substance: FUSIDIC ACID
     Indication: Product used for unknown indication
     Route: 050
  8. Immunoglobulin [Concomitant]
     Indication: Prophylaxis
     Route: 065
  9. ADALIMUMAB [Concomitant]
     Active Substance: ADALIMUMAB
     Indication: Product used for unknown indication
     Route: 065

REACTIONS (2)
  - Skin ulcer [Recovered/Resolved]
  - Off label use [Unknown]
